FAERS Safety Report 11008875 (Version 1)
Quarter: 2015Q2

REPORT INFORMATION
  Report Type: Spontaneous
  Country: GB (occurrence: GB)
  Receive Date: 20150410
  Receipt Date: 20150410
  Transmission Date: 20150821
  Serious: Yes (Hospitalization)
  Sender: FDA-Public Use
  Company Number: GB-MYLANLABS-2015M1011753

PATIENT

DRUGS (1)
  1. MORPHINE [Suspect]
     Active Substance: MORPHINE
     Indication: ABDOMINAL PAIN UPPER
     Route: 048

REACTIONS (5)
  - Agitation [Unknown]
  - Renal failure [Recovered/Resolved]
  - Myoclonus [Unknown]
  - Toxicity to various agents [Recovering/Resolving]
  - Hallucination, visual [Unknown]
